FAERS Safety Report 7542538-4 (Version None)
Quarter: 2011Q2

REPORT INFORMATION
  Report Type: 
  Country: None (occurrence: None)
  Receive Date: 20110613
  Receipt Date: 20110606
  Transmission Date: 20111010
  Serious: Yes (Hospitalization)
  Sender: FDA-Public Use
  Company Number: FR-ROCHE-689289

PATIENT
  Sex: Female
  Weight: 74 kg

DRUGS (19)
  1. RANITIDINE [Concomitant]
     Indication: PREMEDICATION
     Route: 042
     Dates: start: 20080929
  2. DEPAMIDE [Concomitant]
     Indication: DEPRESSION
     Route: 048
     Dates: start: 20070101
  3. TOFRANIL [Concomitant]
     Indication: DEPRESSION
     Route: 048
     Dates: start: 20081010
  4. IMOVANE [Concomitant]
     Indication: SLEEP DISORDER THERAPY
     Route: 048
     Dates: start: 20070101
  5. ACETAMINOPHEN W/ PROPOXYPHENE HCL [Concomitant]
     Indication: PAIN
     Dosage: 6 TABLETS
     Route: 048
     Dates: start: 20081010
  6. TAXOL [Suspect]
     Route: 042
     Dates: start: 20090529, end: 20090824
  7. POLARAMINE [Concomitant]
     Indication: PREMEDICATION
     Route: 042
  8. ZOPHREN [Concomitant]
     Indication: PREMEDICATION
     Route: 042
  9. CYMBALTA [Concomitant]
     Indication: ANTIDEPRESSANT THERAPY
     Route: 048
     Dates: start: 20090525
  10. NEXIUM [Concomitant]
     Indication: PROPHYLAXIS
     Route: 048
     Dates: start: 20070101
  11. DEXAMETHASONE [Concomitant]
     Indication: PREMEDICATION
     Route: 042
  12. OXAZEPAM [Concomitant]
     Indication: ANXIOLYTIC THERAPY
     Route: 048
     Dates: start: 20070101
  13. LERCANIDIPINE [Concomitant]
     Indication: HYPERTENSION
     Route: 048
     Dates: start: 20070101
  14. LEVOTHYROXINE SODIUM [Concomitant]
     Indication: HYPOTHYROIDISM
     Route: 048
     Dates: start: 20070101
  15. DURAGESIC-100 [Concomitant]
     Indication: PAIN
     Dates: start: 20081103
  16. BISOPROLOL FUMARATE [Concomitant]
     Indication: HYPERTENSION
     Route: 048
     Dates: start: 20070101
  17. OXYCODONE HCL [Concomitant]
     Indication: PAIN
     Route: 048
     Dates: start: 20081010
  18. AVASTIN [Suspect]
     Route: 042
     Dates: start: 20090529, end: 20091218
  19. IBANDRONATE SODIUM [Concomitant]
     Route: 042
     Dates: start: 20080929

REACTIONS (3)
  - PROTEINURIA [None]
  - WEIGHT INCREASED [None]
  - OEDEMA PERIPHERAL [None]
